FAERS Safety Report 11416477 (Version 3)
Quarter: 2016Q1

REPORT INFORMATION
  Report Type: Spontaneous
  Country: IT (occurrence: IT)
  Receive Date: 20150825
  Receipt Date: 20160329
  Transmission Date: 20160525
  Serious: Yes (Hospitalization, Other)
  Sender: FDA-Public Use
  Company Number: IT-PFIZER INC-2015279593

PATIENT
  Age: 48 Year
  Sex: Male

DRUGS (3)
  1. MIRTAZAPINE. [Suspect]
     Active Substance: MIRTAZAPINE
     Dosage: 600 MG, TOTAL (FOR 1 DAY)
     Route: 048
     Dates: start: 20150510, end: 20150510
  2. LYRICA [Suspect]
     Active Substance: PREGABALIN
     Dosage: 42 DF, TOTAL (FOR 1 DAY)
     Dates: start: 20150510, end: 20150510
  3. EFFEXOR XR [Suspect]
     Active Substance: VENLAFAXINE HYDROCHLORIDE
     Dosage: 20 DF, TOTAL (FOR 1 DAY)
     Route: 048
     Dates: start: 20150510, end: 20150510

REACTIONS (4)
  - Toxicity to various agents [Recovered/Resolved]
  - Overdose [Unknown]
  - Drug abuse [Unknown]
  - Sopor [Recovered/Resolved]

NARRATIVE: CASE EVENT DATE: 20150510
